FAERS Safety Report 7203390-X (Version None)
Quarter: 2010Q4

REPORT INFORMATION
  Report Type: 
  Country: None (occurrence: None)
  Receive Date: 20101220
  Receipt Date: 20101203
  Transmission Date: 20110411
  Serious: Yes (Hospitalization, Other)
  Sender: FDA-Public Use
  Company Number: ACO_20793_2010

PATIENT
  Age: 45 Year
  Sex: Male
  Weight: 79.8 kg

DRUGS (11)
  1. AMPYRA [Suspect]
     Indication: PRODUCT USED FOR UNKNOWN INDICATION
     Dosage: 10 MG, Q 12 HRS, ORAL
     Route: 048
     Dates: start: 20100401, end: 20101001
  2. WELLBUTRIN [Suspect]
     Indication: PRODUCT USED FOR UNKNOWN INDICATION
     Dosage: 75 MG, QD, ORAL
     Route: 048
     Dates: start: 20090624, end: 20101001
  3. TYSABRI [Concomitant]
  4. AMANTADINE HCL [Concomitant]
  5. BACLOFEN [Concomitant]
  6. ZOLPIDEM [Concomitant]
  7. CYMBALTA [Concomitant]
  8. PROPRANOLOL [Concomitant]
  9. LYRICA [Concomitant]
  10. OMEPRAZOLE [Concomitant]
  11. ROPINIROLE [Concomitant]

REACTIONS (4)
  - ALCOHOL USE [None]
  - GRAND MAL CONVULSION [None]
  - INAPPROPRIATE SCHEDULE OF DRUG ADMINISTRATION [None]
  - REFUSAL OF TREATMENT BY PATIENT [None]
